FAERS Safety Report 8950826 (Version 1)
Quarter: 2012Q4

REPORT INFORMATION
  Report Type: Spontaneous
  Country: US (occurrence: None)
  Receive Date: 20121204
  Receipt Date: 20121204
  Transmission Date: 20130627
  Serious: Yes (Hospitalization, Other)
  Sender: FDA-Public Use
  Company Number: None

PATIENT
  Age: 16 Year
  Sex: Male

DRUGS (2)
  1. INTUNIV [Suspect]
     Indication: ADHD
     Route: 048
     Dates: start: 20121129, end: 20121129
  2. VYVANSE [Suspect]
     Indication: ADHD
     Route: 048

REACTIONS (2)
  - Apnoea [None]
  - Unresponsive to stimuli [None]
